FAERS Safety Report 15628612 (Version 1)
Quarter: 2018Q4

REPORT INFORMATION
  Report Type: Spontaneous
  Country: ES (occurrence: ES)
  Receive Date: 20181116
  Receipt Date: 20181116
  Transmission Date: 20190205
  Serious: Yes (Other)
  Sender: FDA-Public Use
  Company Number: ES-TEVA-2018-ES-974749

PATIENT
  Age: 58 Year
  Sex: Male

DRUGS (2)
  1. GEMCITABINA (7314A) [Suspect]
     Active Substance: GEMCITABINE HYDROCHLORIDE
     Indication: ADENOCARCINOMA PANCREAS
     Route: 065
     Dates: start: 20170831, end: 20180410
  2. ABRAXANE [Interacting]
     Active Substance: PACLITAXEL
     Route: 065
     Dates: start: 20170831, end: 20180410

REACTIONS (4)
  - Oedema peripheral [Recovered/Resolved]
  - Drug interaction [Unknown]
  - Thrombocytopenia [Recovered/Resolved]
  - Neutropenia [Recovered/Resolved]

NARRATIVE: CASE EVENT DATE: 20171121
